FAERS Safety Report 7943492-3 (Version None)
Quarter: 2011Q4

REPORT INFORMATION
  Report Type: 
  Country: None (occurrence: None)
  Receive Date: 20111128
  Receipt Date: 20111122
  Transmission Date: 20120403
  Serious: Yes (Hospitalization, Disabling, Other)
  Sender: FDA-Public Use
  Company Number: PHEH2007US03038

PATIENT
  Sex: Female
  Weight: 74.376 kg

DRUGS (46)
  1. HYDROCHLOROTHIAZIDE [Concomitant]
  2. ACETAMINOPHEN [Concomitant]
  3. REGLAN [Concomitant]
  4. DYAZIDE [Concomitant]
  5. BUSPAR [Concomitant]
  6. BENADRYL ^ACHE^ [Concomitant]
  7. ZITHROMAX [Concomitant]
  8. NEOSPORIN EYE AND EAR SOLUTION [Concomitant]
  9. XELODA [Concomitant]
  10. TAXOTERE [Concomitant]
     Indication: BREAST CANCER METASTATIC
  11. NEULASTA [Concomitant]
  12. ADRIAMYCIN PFS [Concomitant]
     Indication: BREAST CANCER METASTATIC
  13. TARCEVA [Concomitant]
     Dosage: 150 MG, QD
  14. AUGMENTAN ORAL [Concomitant]
  15. CELEXA [Concomitant]
     Dosage: 40 MG, QD
     Dates: start: 20031023
  16. CYTOXAN [Concomitant]
     Indication: BREAST CANCER METASTATIC
  17. FLUOROURACIL [Concomitant]
     Indication: BREAST CANCER METASTATIC
  18. KAY CIEL DURA-TABS [Concomitant]
  19. AMBIEN [Concomitant]
     Dosage: UNK
  20. FLEXERIL [Concomitant]
  21. TOPROL-XL [Concomitant]
     Dosage: 25 MG, QD
  22. ERLOTINIB HYDROCHLORIDE [Concomitant]
     Dosage: 150 MG, QD
  23. ZOFRAN [Concomitant]
  24. INDERAL [Concomitant]
  25. AVALIDE [Concomitant]
  26. SPIRONOLACTONE [Concomitant]
  27. ED-FLEX [Concomitant]
     Indication: PAIN
  28. KEFLEX [Concomitant]
  29. TORADOL [Concomitant]
     Indication: PAIN
  30. SEPTRA DS [Concomitant]
     Dosage: UNK
  31. AREDIA [Suspect]
     Dosage: 30 MG
  32. TAMOXIFEN CITRATE [Concomitant]
  33. GEMZAR [Concomitant]
     Indication: BREAST CANCER METASTATIC
  34. AREDIA [Suspect]
     Dosage: 90 MG, UNK
     Dates: end: 20060725
  35. ZELNORM                                 /USA/ [Concomitant]
  36. PHENERGAN [Concomitant]
  37. DARVON [Concomitant]
     Dosage: UNK
  38. ALLEGRA [Concomitant]
  39. DARVOCET-N 50 [Concomitant]
  40. LORTAB [Concomitant]
  41. MICRO-K [Concomitant]
     Dosage: 20 MEQ, TID
  42. ATIVAN [Concomitant]
  43. ALDACTONE [Concomitant]
  44. NAVELBINE [Concomitant]
  45. DECADRON [Concomitant]
     Indication: BREAST CANCER METASTATIC
     Dosage: 10 MG, UNK
  46. NEXIUM [Concomitant]
     Indication: GASTROOESOPHAGEAL REFLUX DISEASE

REACTIONS (89)
  - OESOPHAGEAL ULCER HAEMORRHAGE [None]
  - OSTEONECROSIS OF JAW [None]
  - HEADACHE [None]
  - LOCALISED INFECTION [None]
  - PHARYNGITIS [None]
  - PLEURITIC PAIN [None]
  - HAEMOPTYSIS [None]
  - HEPATIC MASS [None]
  - POST INFLAMMATORY PIGMENTATION CHANGE [None]
  - HIP FRACTURE [None]
  - DEHYDRATION [None]
  - COMPRESSION FRACTURE [None]
  - NASAL CONGESTION [None]
  - SINUSITIS [None]
  - BLOOD CALCIUM INCREASED [None]
  - OVARIAN ADHESION [None]
  - RASH [None]
  - OBSTRUCTIVE AIRWAYS DISORDER [None]
  - HEART RATE IRREGULAR [None]
  - PAIN [None]
  - DECREASED INTEREST [None]
  - OTITIS MEDIA [None]
  - EAR PAIN [None]
  - PLEURAL EFFUSION [None]
  - DECREASED APPETITE [None]
  - DYSPNOEA [None]
  - DISABILITY [None]
  - SINUS BRADYCARDIA [None]
  - ASCITES [None]
  - ABDOMINAL DISCOMFORT [None]
  - BLOOD ALKALINE PHOSPHATASE INCREASED [None]
  - PELVIC ADHESIONS [None]
  - TOTAL LUNG CAPACITY DECREASED [None]
  - OSTEOLYSIS [None]
  - METASTASES TO LUNG [None]
  - ARTHRITIS [None]
  - ABDOMINAL PAIN UPPER [None]
  - OEDEMA MUCOSAL [None]
  - METASTASES TO LYMPH NODES [None]
  - EXTRADURAL HAEMATOMA [None]
  - OESOPHAGEAL ULCER [None]
  - ANXIETY [None]
  - METASTASES TO BONE [None]
  - ANAEMIA [None]
  - WEIGHT BEARING DIFFICULTY [None]
  - BONE PAIN [None]
  - BACK PAIN [None]
  - FEMUR FRACTURE [None]
  - UTERINE LEIOMYOMA [None]
  - NEUTROPENIA [None]
  - HEPATIC LESION [None]
  - LYMPHADENOPATHY [None]
  - ROSACEA [None]
  - GASTRIC MUCOSAL HYPERTROPHY [None]
  - BRONCHITIS [None]
  - FALL [None]
  - ARTHRALGIA [None]
  - BLOOD CALCIUM DECREASED [None]
  - UPPER RESPIRATORY TRACT INFECTION [None]
  - OTITIS EXTERNA [None]
  - UMBILICAL HERNIA [None]
  - PNEUMONITIS [None]
  - BLOOD UREA NITROGEN/CREATININE RATIO INCREASED [None]
  - ENDOMETRIAL ATROPHY [None]
  - THROMBOCYTOPENIA [None]
  - GASTRIC ULCER [None]
  - ACNE [None]
  - GASTRITIS EROSIVE [None]
  - ODYNOPHAGIA [None]
  - GENERAL PHYSICAL HEALTH DETERIORATION [None]
  - DIARRHOEA [None]
  - PRODUCTIVE COUGH [None]
  - PAIN IN EXTREMITY [None]
  - VENTRICULAR HYPERTROPHY [None]
  - METASTASES TO LIVER [None]
  - PNEUMONIA [None]
  - RASH PUSTULAR [None]
  - OESOPHAGITIS [None]
  - MALAISE [None]
  - VOCAL CORD POLYP [None]
  - URINARY TRACT INFECTION [None]
  - ASPARTATE AMINOTRANSFERASE INCREASED [None]
  - MYOSITIS [None]
  - OEDEMA PERIPHERAL [None]
  - DIVERTICULUM [None]
  - HEPATIC STEATOSIS [None]
  - METASTASES TO CENTRAL NERVOUS SYSTEM [None]
  - PHOTOSENSITIVITY REACTION [None]
  - CONSTIPATION [None]
